FAERS Safety Report 6588097-4 (Version None)
Quarter: 2010Q1

REPORT INFORMATION
  Report Type: 
  Country: None (occurrence: None)
  Receive Date: 20100218
  Receipt Date: 20100209
  Transmission Date: 20100710
  Serious: Yes (Other)
  Sender: FDA-Public Use
  Company Number: PHEH2010US01257

PATIENT
  Sex: Male

DRUGS (3)
  1. EXJADE [Suspect]
     Indication: IRON OVERLOAD
     Dosage: 500 UNK, TID
     Route: 065
     Dates: start: 20090903, end: 20091211
  2. LISINOPRIL [Concomitant]
     Dosage: UNK
     Route: 048
  3. PREVACID [Concomitant]
     Dosage: UNK
     Route: 048

REACTIONS (1)
  - JAUNDICE [None]
